FAERS Safety Report 10983282 (Version 4)
Quarter: 2016Q1

REPORT INFORMATION
  Report Type: Spontaneous
  Country: US (occurrence: US)
  Receive Date: 20150403
  Receipt Date: 20160315
  Transmission Date: 20160525
  Serious: Yes (Other)
  Sender: FDA-Public Use
  Company Number: US-ASTRAZENECA-2013SE86624

PATIENT
  Age: 56 Year
  Sex: Female
  Weight: 64.5 kg

DRUGS (25)
  1. BYETTA [Suspect]
     Active Substance: EXENATIDE
     Route: 058
     Dates: start: 20120417
  2. INVOKANA [Concomitant]
     Active Substance: CANAGLIFLOZIN
  3. ATORVASTATIN [Concomitant]
     Active Substance: ATORVASTATIN
  4. ASPIRIN. [Concomitant]
     Active Substance: ASPIRIN
     Dates: start: 20120713
  5. LOSARTAN. [Concomitant]
     Active Substance: LOSARTAN
     Dates: start: 20140725
  6. BIOTIN [Concomitant]
     Active Substance: BIOTIN
     Dates: start: 20120713
  7. PRANDIN [Concomitant]
     Active Substance: REPAGLINIDE
  8. GLIPIZIDE. [Concomitant]
     Active Substance: GLIPIZIDE
  9. BYETTA [Suspect]
     Active Substance: EXENATIDE
     Route: 065
     Dates: start: 20120411
  10. CALCIUM +VITAMIN D [Concomitant]
     Dates: start: 20120713
  11. TRIGLIDE [Concomitant]
     Active Substance: FENOFIBRATE
     Dates: start: 20120817
  12. ZOCOR [Concomitant]
     Active Substance: SIMVASTATIN
     Route: 048
     Dates: start: 20120817
  13. LEVEMIR [Concomitant]
     Active Substance: INSULIN DETEMIR
     Dates: start: 20140725
  14. BYETTA [Suspect]
     Active Substance: EXENATIDE
     Route: 065
     Dates: start: 200907
  15. BENICAR [Concomitant]
     Active Substance: OLMESARTAN MEDOXOMIL
     Route: 048
     Dates: start: 20120817
  16. GEMFIBROZIL. [Concomitant]
     Active Substance: GEMFIBROZIL
  17. ESTRACE [Concomitant]
     Active Substance: ESTRADIOL
     Dates: start: 201208
  18. JANUVIA [Concomitant]
     Active Substance: SITAGLIPTIN PHOSPHATE
     Route: 048
     Dates: start: 20070906
  19. CINNAMON. [Concomitant]
     Active Substance: CINNAMON
  20. SYNTHROID/LEVOXYL [Concomitant]
     Dates: start: 20120713
  21. MULTIVITAMIN [Concomitant]
     Active Substance: VITAMINS
     Dates: start: 20120713
  22. FISH OIL [Concomitant]
     Active Substance: FISH OIL
     Dates: start: 20120713
  23. GLUCOPHAGE [Concomitant]
     Active Substance: METFORMIN HYDROCHLORIDE
     Route: 048
     Dates: start: 20120807
  24. REPAGLINIDE. [Concomitant]
     Active Substance: REPAGLINIDE
  25. OMEGA [Concomitant]
     Active Substance: CONVALLARIA MAJALIS\CRATAEGUS LAEVIGATA LEAF\PROXYPHYLLINE

REACTIONS (4)
  - Papillary thyroid cancer [Unknown]
  - Goitre [Unknown]
  - Autoimmune thyroiditis [Unknown]
  - Post procedural hypothyroidism [Unknown]

NARRATIVE: CASE EVENT DATE: 2011
